FAERS Safety Report 24788200 (Version 3)
Quarter: 2025Q4

REPORT INFORMATION
  Report Type: Spontaneous
  Country: EU (occurrence: EU)
  Receive Date: 20241230
  Receipt Date: 20251110
  Transmission Date: 20260117
  Serious: Yes (Hospitalization, Other)
  Sender: AUROBINDO
  Company Number: EU-BIAL-BIAL-09667

PATIENT
  Age: 26 Year
  Sex: Male

DRUGS (4)
  1. AMOXICILLIN\CLAVULANIC ACID [Suspect]
     Active Substance: AMOXICILLIN\CLAVULANIC ACID
     Indication: Tonsillitis bacterial
     Dosage: 875 MILLIGRAM, 3 TIMES A DAY [875/125 MG, EVERY EIGHT HOURS]
     Route: 048
  2. AMOXICILLIN\CLAVULANIC ACID [Suspect]
     Active Substance: AMOXICILLIN\CLAVULANIC ACID
     Indication: Antibiotic therapy
  3. IBUPROFEN [Concomitant]
     Active Substance: IBUPROFEN
     Indication: Tonsillitis bacterial
     Dosage: 400 MILLIGRAM, 3 TIMES A DAY [400 MG, TID (EIGHT HOURS)]
     Route: 065
  4. IBUPROFEN [Concomitant]
     Active Substance: IBUPROFEN
     Indication: Antibiotic therapy

REACTIONS (11)
  - Rash [Recovering/Resolving]
  - Hepatitis cholestatic [Recovered/Resolved]
  - Epstein-Barr virus infection [Recovered/Resolved]
  - Infectious mononucleosis [Recovered/Resolved]
  - Jaundice [Unknown]
  - Lymphadenopathy [Unknown]
  - Odynophagia [Unknown]
  - Drug-induced liver injury [Recovering/Resolving]
  - Drug ineffective [Unknown]
  - Off label use [Unknown]
  - Drug ineffective for unapproved indication [Unknown]
